FAERS Safety Report 7937624-0 (Version None)
Quarter: 2011Q4

REPORT INFORMATION
  Report Type: 
  Country: None (occurrence: None)
  Receive Date: 20111123
  Receipt Date: 20111025
  Transmission Date: 20120403
  Serious: No
  Sender: FDA-Public Use
  Company Number: US-BAYER-2011-104496

PATIENT
  Sex: Male

DRUGS (4)
  1. LEVITRA [Suspect]
     Indication: ERECTILE DYSFUNCTION
     Dosage: 20 MG, UNK
     Route: 048
  2. ANTIHYPERTENSIVES [Concomitant]
  3. ASPIRIN [Concomitant]
  4. SOMINEX [Concomitant]

REACTIONS (2)
  - NO ADVERSE EVENT [None]
  - DRUG INEFFECTIVE [None]
